FAERS Safety Report 25531803 (Version 1)
Quarter: 2025Q3

REPORT INFORMATION
  Report Type: Spontaneous
  Country: CN (occurrence: CN)
  Receive Date: 20250709
  Receipt Date: 20250709
  Transmission Date: 20251020
  Serious: Yes (Hospitalization, Other)
  Sender: BIO-THERA SOLUTIONS, LTD
  Company Number: CN-BAT-2025BAT000641

PATIENT
  Age: 55 Year
  Sex: Female
  Weight: 66.00 kg

DRUGS (3)
  1. BEVACIZUMAB [Suspect]
     Active Substance: BEVACIZUMAB
     Indication: Ovarian cancer stage IV
     Dosage: 800.00 MG, ONLY ONCE
     Route: 041
     Dates: start: 20250606, end: 20250606
  2. PACLITAXEL [Concomitant]
     Active Substance: PACLITAXEL
     Indication: Ovarian cancer stage IV
     Dates: start: 20250604, end: 20250604
  3. CARBOPLATIN [Concomitant]
     Active Substance: CARBOPLATIN
     Indication: Ovarian cancer stage IV
     Dates: start: 20250604, end: 20250604

REACTIONS (2)
  - Dermatitis exfoliative [Unknown]
  - Hepatic function abnormal [Recovering/Resolving]

NARRATIVE: CASE EVENT DATE: 20250613
